FAERS Safety Report 9870960 (Version 3)
Quarter: 2014Q2

REPORT INFORMATION
  Report Type: Spontaneous
  Country: BR (occurrence: BR)
  Receive Date: 20140205
  Receipt Date: 20140530
  Transmission Date: 20141212
  Serious: Yes (Other)
  Sender: FDA-Public Use
  Company Number: BR-BIOMARINAP-BR-2013-102446

PATIENT
  Sex: Female
  Weight: 24 kg

DRUGS (1)
  1. NAGLAZYME [Suspect]
     Indication: MUCOPOLYSACCHARIDOSIS VI
     Dosage: 20 MG, QW
     Route: 041
     Dates: start: 20070515

REACTIONS (4)
  - Spinal cord compression [Unknown]
  - Asthenia [Unknown]
  - Incontinence [Unknown]
  - Abasia [Unknown]
